FAERS Safety Report 17270187 (Version 2)
Quarter: 2020Q1

REPORT INFORMATION
  Report Type: Spontaneous
  Country: SE (occurrence: SE)
  Receive Date: 20200114
  Receipt Date: 20200117
  Transmission Date: 20200409
  Serious: No
  Sender: FDA-Public Use
  Company Number: NVSC2019SE086389

PATIENT
  Sex: Male

DRUGS (2)
  1. RANITIDIN SANDOZ 150 MG FILMDRAGERADE TABLETTER [Suspect]
     Active Substance: RANITIDINE HYDROCHLORIDE
     Indication: GASTROOESOPHAGEAL REFLUX DISEASE
     Dosage: 150 MG, BID (150 MG RANITIDIN IN THE EVENING AND 150 MG AT THE MIDDLE OF THE NIGHT)
     Route: 065
  2. RANITIDIN SANDOZ 150 MG FILMDRAGERADE TABLETTER [Suspect]
     Active Substance: RANITIDINE HYDROCHLORIDE
     Dosage: 450 MG, QD (IN THE EVENING TO 300 MG AND 150 MG AT THE MIDDLE OF THE NIGHT)
     Route: 065

REACTIONS (1)
  - Drug ineffective [Recovered/Resolved]
